FAERS Safety Report 4715900-2 (Version None)
Quarter: 2005Q3

REPORT INFORMATION
  Report Type: 
  Country: None (occurrence: None)
  Receive Date: 20050718
  Receipt Date: 20050706
  Transmission Date: 20060218
  Serious: Yes (Hospitalization)
  Sender: FDA-Public Use
  Company Number: US-MERCK-0507USA01139

PATIENT
  Age: 32 Year
  Sex: Female
  Weight: 111 kg

DRUGS (3)
  1. VIOXX [Suspect]
     Indication: BACK PAIN
     Route: 048
     Dates: start: 20040301, end: 20040801
  2. VIOXX [Suspect]
     Indication: ARTHRITIS
     Route: 048
     Dates: start: 20040301, end: 20040801
  3. LORTAB [Concomitant]
     Route: 065

REACTIONS (29)
  - ACUTE MYOCARDIAL INFARCTION [None]
  - ANGINA UNSTABLE [None]
  - ANXIETY [None]
  - ARTERIOSCLEROSIS [None]
  - ARTHRALGIA [None]
  - ASTHENIA [None]
  - CHEST PAIN [None]
  - CORONARY ARTERY DISEASE [None]
  - CULTURE URINE POSITIVE [None]
  - DEPRESSION [None]
  - DYSPEPSIA [None]
  - GASTROOESOPHAGEAL REFLUX DISEASE [None]
  - HEADACHE [None]
  - HYPERSENSITIVITY [None]
  - HYPERTENSION [None]
  - HYPOTENSION [None]
  - INCREASED APPETITE [None]
  - INFLUENZA [None]
  - INSOMNIA [None]
  - METABOLIC ENCEPHALOPATHY [None]
  - MIXED HYPERLIPIDAEMIA [None]
  - MYOCARDIAL INFARCTION [None]
  - PALPITATIONS [None]
  - PERICARDITIS [None]
  - PHARYNGOLARYNGEAL PAIN [None]
  - PULMONARY EMBOLISM [None]
  - THROMBOPHLEBITIS SUPERFICIAL [None]
  - TRANSIENT ISCHAEMIC ATTACK [None]
  - VENTRICULAR TACHYCARDIA [None]
